FAERS Safety Report 24396840 (Version 3)
Quarter: 2024Q4

REPORT INFORMATION
  Report Type: Report from Study
  Country: US (occurrence: US)
  Receive Date: 20241004
  Receipt Date: 20241204
  Transmission Date: 20250114
  Serious: Yes (Hospitalization, Other)
  Sender: AEGERION
  Company Number: US-AMRYT PHARMACEUTICALS DAC-AEGR007435

PATIENT
  Sex: Female
  Weight: 8.617 kg

DRUGS (1)
  1. FILSUVEZ [Suspect]
     Active Substance: BIRCH TRITERPENES
     Indication: Epidermolysis bullosa
     Dosage: 10% W/W GEL 23.4G, APPLY A 1 MM LAYER TO AFFECTED WOUND SURFACE(S) AT EACH DRESSING CHANGE UNTIL WOU
     Route: 061
     Dates: start: 20240822

REACTIONS (8)
  - Urinary tract infection [Recovering/Resolving]
  - Tracheostomy [Not Recovered/Not Resolved]
  - Pseudomonas infection [Not Recovered/Not Resolved]
  - Condition aggravated [Not Recovered/Not Resolved]
  - Wound haemorrhage [Not Recovered/Not Resolved]
  - Product residue present [Unknown]
  - Drug ineffective [Unknown]
  - Product quality issue [Unknown]
